FAERS Safety Report 7515818-6 (Version None)
Quarter: 2011Q2

REPORT INFORMATION
  Report Type: 
  Country: None (occurrence: None)
  Receive Date: 20110601
  Receipt Date: 20110523
  Transmission Date: 20111010
  Serious: Yes (Other)
  Sender: FDA-Public Use
  Company Number: US-ASTRAZENECA-2011SE32506

PATIENT
  Age: 54 Year
  Sex: Female
  Weight: 58.1 kg

DRUGS (7)
  1. LOPRESSOR [Suspect]
     Route: 048
  2. PRISTIQ [Suspect]
     Indication: DEPRESSION
     Route: 048
     Dates: start: 20110425
  3. ESTRIOL [Concomitant]
  4. VICODIN [Concomitant]
  5. SEROQUEL [Suspect]
     Route: 048
  6. PRISTIQ [Suspect]
     Indication: MALAISE
     Route: 048
     Dates: start: 20110425
  7. DURAGESIC-100 [Concomitant]

REACTIONS (3)
  - DEPRESSION [None]
  - URTICARIA [None]
  - SEROTONIN SYNDROME [None]
